FAERS Safety Report 9967415 (Version 2)
Quarter: 2014Q1

REPORT INFORMATION
  Report Type: Report from Study
  Country: US (occurrence: US)
  Receive Date: 20140305
  Receipt Date: 20140305
  Transmission Date: 20141002
  Serious: No
  Sender: FDA-Public Use
  Company Number: US-ABBVIE-13P-163-1125155-00

PATIENT
  Sex: Female
  Weight: 63.56 kg

DRUGS (3)
  1. HUMIRA [Suspect]
     Indication: CROHN^S DISEASE
     Dates: start: 20130301, end: 201306
  2. UNKNOWN THYROID PILL [Concomitant]
     Indication: THYROID DISORDER
  3. UNKNOWN HORMONE THERAPY [Concomitant]
     Indication: HORMONE THERAPY

REACTIONS (1)
  - Drug ineffective [Unknown]
